FAERS Safety Report 9015223 (Version 1)
Quarter: 2013Q1

REPORT INFORMATION
  Report Type: Spontaneous
  Country: US (occurrence: None)
  Receive Date: 20130109
  Receipt Date: 20130109
  Transmission Date: 20140127
  Serious: No
  Sender: FDA-Public Use
  Company Number: None

PATIENT
  Sex: Female
  Weight: 59.42 kg

DRUGS (2)
  1. ZOMIG [Suspect]
     Indication: MIGRAINE
     Dosage: PRN
     Route: 048
  2. SUMATRIPTAN [Suspect]
     Indication: MIGRAINE
     Dosage: PRN
     Route: 048

REACTIONS (3)
  - Temperature intolerance [None]
  - Arthralgia [None]
  - Breast pain [None]
